FAERS Safety Report 9843412 (Version 1)
Quarter: 2013Q4

REPORT INFORMATION
  Report Type: Spontaneous
  Country: US (occurrence: None)
  Receive Date: 20131223
  Receipt Date: 20131223
  Transmission Date: 20140711
  Serious: No
  Sender: FDA-Public Use
  Company Number: 220163LEO

PATIENT
  Age: 40 Year
  Sex: Female

DRUGS (2)
  1. PICATO [Suspect]
     Indication: ACTINIC KERATOSIS
     Dosage: TOPICAL
     Dates: start: 20130111, end: 20130113
  2. SYNTHROID (LEVOTHY-ROXINE SODIUM) [Concomitant]

REACTIONS (6)
  - Application site vesicles [None]
  - Application site inflammation [None]
  - Application site dryness [None]
  - Application site exfoliation [None]
  - Drug administered at inappropriate site [None]
  - Inappropriate schedule of drug administration [None]
